FAERS Safety Report 4512442-4 (Version None)
Quarter: 2004Q4

REPORT INFORMATION
  Report Type: 
  Country: None (occurrence: None)
  Receive Date: 20041124
  Receipt Date: 20041108
  Transmission Date: 20050328
  Serious: Yes (Hospitalization, Other)
  Sender: FDA-Public Use
  Company Number: US97120208A

PATIENT
  Sex: Female

DRUGS (5)
  1. HUMULIN R [Suspect]
     Indication: DIABETES MELLITUS
     Dosage: 17 U DAY
  2. HUMULIN N [Suspect]
     Indication: DIABETES MELLITUS
     Dosage: 14 U DAY
  3. INSULIN-INSULIN-ANIMAL (UNKNOWN FORMULATOIN) (INSUL [Suspect]
     Indication: DIABETES MELLITUS
     Dates: start: 19680410
  4. FIORICET [Concomitant]
  5. DEMEROL/USA/(PETHIDINE HYDROCHLORIDE) [Concomitant]

REACTIONS (19)
  - BLOOD GLUCOSE FLUCTUATION [None]
  - CEREBROVASCULAR ACCIDENT [None]
  - CONVULSION [None]
  - DRUG EFFECT DECREASED [None]
  - DYSKINESIA [None]
  - GRAND MAL CONVULSION [None]
  - INJECTION SITE ERYTHEMA [None]
  - INJECTION SITE INDURATION [None]
  - LIVER DISORDER [None]
  - LOSS OF CONSCIOUSNESS [None]
  - NEUROPATHY PERIPHERAL [None]
  - OSTEOARTHRITIS [None]
  - OVARIAN CANCER [None]
  - PHARMACEUTICAL PRODUCT COMPLAINT [None]
  - RASH MACULAR [None]
  - RENAL IMPAIRMENT [None]
  - RHEUMATOID ARTHRITIS [None]
  - THYROID DISORDER [None]
  - VISION BLURRED [None]
